FAERS Safety Report 9032200 (Version 1)
Quarter: 2013Q1

REPORT INFORMATION
  Report Type: Report from Study
  Country: US (occurrence: US)
  Receive Date: 20130122
  Receipt Date: 20130122
  Transmission Date: 20140127
  Serious: Yes (Other)
  Sender: FDA-Public Use
  Company Number: US-US-EMD SERONO, INC.-7187938

PATIENT
  Sex: Female
  Weight: 95 kg

DRUGS (4)
  1. REBIF [Suspect]
     Indication: PRODUCT USED FOR UNKNOWN INDICATION
     Route: 058
     Dates: start: 20090621
  2. TRAMADOL [Concomitant]
     Indication: PAIN
  3. VICODIN [Concomitant]
     Indication: PAIN
  4. RESTORIL [Concomitant]
     Indication: SLEEP DISORDER

REACTIONS (5)
  - Benign neoplasm [Not Recovered/Not Resolved]
  - Meniscus injury [Not Recovered/Not Resolved]
  - Type 2 diabetes mellitus [Unknown]
  - Myalgia [Unknown]
  - Headache [Not Recovered/Not Resolved]
